FAERS Safety Report 15685171 (Version 1)
Quarter: 2018Q4

REPORT INFORMATION
  Report Type: Spontaneous
  Country: US (occurrence: US)
  Receive Date: 20181121
  Receipt Date: 20181121
  Transmission Date: 20190205
  Serious: No
  Sender: FDA-Public Use
  Company Number: None

PATIENT
  Age: 53 Year
  Sex: Female

DRUGS (1)
  1. SPRYCEL [Suspect]
     Active Substance: DASATINIB
     Dates: start: 201708, end: 201808

REACTIONS (3)
  - Decreased appetite [None]
  - General physical health deterioration [None]
  - Peripheral swelling [None]

NARRATIVE: CASE EVENT DATE: 20181120
